FAERS Safety Report 24637422 (Version 2)
Quarter: 2024Q4

REPORT INFORMATION
  Report Type: Report from Study
  Country: ES (occurrence: ES)
  Receive Date: 20241119
  Receipt Date: 20241122
  Transmission Date: 20250115
  Serious: Yes (Life-Threatening, Hospitalization)
  Sender: ABBVIE
  Company Number: ES-ABBVIE-6009170

PATIENT
  Age: 49 Year
  Sex: Male

DRUGS (4)
  1. CARBIDOPA\LEVODOPA [Suspect]
     Active Substance: CARBIDOPA\LEVODOPA
     Indication: Parkinson^s disease
     Route: 050
     Dates: start: 20230302, end: 202411
  2. CARBIDOPA\LEVODOPA [Suspect]
     Active Substance: CARBIDOPA\LEVODOPA
  3. ZOLPIDEM [Suspect]
     Active Substance: ZOLPIDEM TARTRATE
     Indication: Product used for unknown indication
     Route: 065
     Dates: start: 2024
  4. CARBIDOPA\ENTACAPONE\LEVODOPA [Concomitant]
     Active Substance: CARBIDOPA\ENTACAPONE\LEVODOPA
     Indication: Product used for unknown indication

REACTIONS (4)
  - Suicide attempt [Recovering/Resolving]
  - Persecutory delusion [Unknown]
  - Depressive symptom [Unknown]
  - Hospitalisation [Unknown]

NARRATIVE: CASE EVENT DATE: 20240101
